FAERS Safety Report 22263687 (Version 2)
Quarter: 2025Q2

REPORT INFORMATION
  Report Type: Spontaneous
  Country: US (occurrence: US)
  Receive Date: 20230428
  Receipt Date: 20250429
  Transmission Date: 20250717
  Serious: Yes (Other)
  Sender: TARO
  Company Number: US-TARO PHARMACEUTICALS USA INC.-2022TAR01019

PATIENT

DRUGS (4)
  1. FLUOROURACIL [Suspect]
     Active Substance: FLUOROURACIL
     Indication: Actinic keratosis
     Dosage: MAYBE TOO MUCH, DAILY
     Route: 061
     Dates: start: 202207
  2. FLUOROURACIL [Suspect]
     Active Substance: FLUOROURACIL
     Dosage: FINGER-TIP AMOUNT
     Route: 061
  3. SIMVASTATIN [Concomitant]
     Active Substance: SIMVASTATIN
     Indication: Product used for unknown indication
     Route: 065
  4. LEVOTHYROXINE [Concomitant]
     Active Substance: LEVOTHYROXINE
     Indication: Product used for unknown indication
     Route: 065

REACTIONS (8)
  - Postoperative wound infection [Recovered/Resolved]
  - Scab [Not Recovered/Not Resolved]
  - Pigmentation disorder [Not Recovered/Not Resolved]
  - Eczema [Unknown]
  - Acanthosis [Recovered/Resolved]
  - Eye swelling [Recovered/Resolved]
  - Condition aggravated [Unknown]
  - Expired product administered [Unknown]

NARRATIVE: CASE EVENT DATE: 20220701
